FAERS Safety Report 15603692 (Version 4)
Quarter: 2019Q4

REPORT INFORMATION
  Report Type: Report from Study
  Country: US (occurrence: US)
  Receive Date: 20181109
  Receipt Date: 20191004
  Transmission Date: 20200122
  Serious: Yes (Hospitalization)
  Sender: FDA-Public Use
  Company Number: US-PFIZER INC-2018458422

PATIENT
  Age: 17 Month
  Sex: Male

DRUGS (3)
  1. OXYCODONE [Suspect]
     Active Substance: OXYCODONE
     Dosage: UNK
     Route: 063
  2. MORPHINE SULFATE. [Suspect]
     Active Substance: MORPHINE SULFATE
     Dosage: UNK
     Route: 063
  3. FENTANYL CITRATE. [Suspect]
     Active Substance: FENTANYL CITRATE
     Dosage: UNK
     Route: 063

REACTIONS (11)
  - Miosis [Unknown]
  - Exposure via breast milk [Unknown]
  - Somnolence [Unknown]
  - Lethargy [Unknown]
  - Hyperglycaemia [Unknown]
  - Acidosis [Unknown]
  - Tachycardia [Unknown]
  - Irritability [Unknown]
  - Confusional state [Unknown]
  - Respiratory depression [Unknown]
  - Agitation [Unknown]
